FAERS Safety Report 7300029-X (Version None)
Quarter: 2011Q1

REPORT INFORMATION
  Report Type: 
  Country: None (occurrence: None)
  Receive Date: 20110217
  Receipt Date: 20110215
  Transmission Date: 20110831
  Serious: Yes (Hospitalization, Other)
  Sender: FDA-Public Use
  Company Number: US-AMGEN-USASP2011007236

PATIENT
  Age: 61 Year
  Sex: Female

DRUGS (6)
  1. HYDRALAZINE [Concomitant]
  2. CORTICOSTEROIDS [Concomitant]
     Indication: IDIOPATHIC THROMBOCYTOPENIC PURPURA
  3. FISH OIL [Concomitant]
  4. INSULIN                            /00030503/ [Concomitant]
  5. PREDNISONE [Concomitant]
  6. NPLATE [Suspect]
     Indication: IDIOPATHIC THROMBOCYTOPENIC PURPURA
     Dosage: 4 A?G/KG, UNK
     Dates: start: 20100610, end: 20100726

REACTIONS (8)
  - HYPERLIPIDAEMIA [None]
  - RESTLESS LEGS SYNDROME [None]
  - DEMENTIA WITH LEWY BODIES [None]
  - PULMONARY EMBOLISM [None]
  - RENAL FAILURE ACUTE [None]
  - ISCHAEMIC STROKE [None]
  - GROIN PAIN [None]
  - BLADDER NEOPLASM [None]
